FAERS Safety Report 13885054 (Version 1)
Quarter: 2017Q3

REPORT INFORMATION
  Report Type: Spontaneous
  Country: US (occurrence: US)
  Receive Date: 20170821
  Receipt Date: 20170821
  Transmission Date: 20171127
  Serious: No
  Sender: FDA-Public Use
  Company Number: US-MYLANLABS-2017M1013432

PATIENT
  Age: 45 Year
  Sex: Female
  Weight: 59.86 kg

DRUGS (2)
  1. DIPHENHYDRAMINE HYDROCHLORIDE INJECTION, USP [Suspect]
     Active Substance: DIPHENHYDRAMINE HYDROCHLORIDE
     Indication: URTICARIA
  2. DIPHENHYDRAMINE HYDROCHLORIDE INJECTION, USP [Suspect]
     Active Substance: DIPHENHYDRAMINE HYDROCHLORIDE
     Indication: NAUSEA
     Dosage: 50 MG, QID
     Route: 042
     Dates: start: 201702, end: 201702

REACTIONS (1)
  - Tremor [Recovered/Resolved]

NARRATIVE: CASE EVENT DATE: 201702
